FAERS Safety Report 7878383-X (Version None)
Quarter: 2011Q4

REPORT INFORMATION
  Report Type: 
  Country: None (occurrence: None)
  Receive Date: 20111031
  Receipt Date: 20111021
  Transmission Date: 20120403
  Serious: Yes (Disabling)
  Sender: FDA-Public Use
  Company Number: 2011SP049957

PATIENT
  Age: 18 Year
  Sex: Female

DRUGS (1)
  1. VECURONIUM BROMIDE [Suspect]
     Indication: MUSCLE RELAXANT THERAPY
     Dosage: 10 MG; ;IV
     Route: 042
     Dates: start: 19980801, end: 19980801

REACTIONS (2)
  - NERVOUS SYSTEM DISORDER [None]
  - HYPERTHERMIA MALIGNANT [None]
